FAERS Safety Report 17501350 (Version 2)
Quarter: 2020Q1

REPORT INFORMATION
  Report Type: Report from Study
  Country: CL (occurrence: CL)
  Receive Date: 20200305
  Receipt Date: 20200320
  Transmission Date: 20200409
  Serious: Yes (Other)
  Sender: FDA-Public Use
  Company Number: NVSC2020CL061879

PATIENT
  Age: 13 Year
  Sex: Male
  Weight: 50 kg

DRUGS (2)
  1. OMNITROPE [Suspect]
     Active Substance: SOMATROPIN
     Indication: GROWTH HORMONE DEFICIENCY
     Dosage: 1.8 IU, QD
     Route: 058
     Dates: start: 20200226
  2. OMNITROPE [Suspect]
     Active Substance: SOMATROPIN
     Indication: HYPOTHYROIDISM

REACTIONS (5)
  - Headache [Unknown]
  - Syncope [Recovered/Resolved]
  - Skin discolouration [Unknown]
  - Blood pressure decreased [Unknown]
  - Fall [Unknown]

NARRATIVE: CASE EVENT DATE: 20200228
